FAERS Safety Report 5524367-6 (Version None)
Quarter: 2007Q4

REPORT INFORMATION
  Report Type: 
  Country: None (occurrence: None)
  Receive Date: 20071121
  Receipt Date: 20071115
  Transmission Date: 20080405
  Serious: Yes (Hospitalization)
  Sender: FDA-Public Use
  Company Number: FR-PFIZER INC-2007096400

PATIENT
  Age: 79 Year
  Sex: Male

DRUGS (9)
  1. CELEBREX [Suspect]
     Indication: ARTHRALGIA
     Route: 048
     Dates: start: 20070904, end: 20070904
  2. OXAZEPAM [Suspect]
     Dosage: DAILY DOSE:50MG
     Route: 048
  3. BROMAZEPAM [Suspect]
     Route: 048
  4. ACETYLSALICYLATE LYSINE [Concomitant]
     Route: 048
  5. LABETALOL HYDROCHLORIDE [Concomitant]
     Route: 048
  6. CLOPIDOGREL [Concomitant]
     Route: 048
  7. ATORVASTATIN CALCIUM [Concomitant]
     Route: 048
  8. TAMSULOSIN HCL [Concomitant]
     Route: 048
  9. LACTULOSE [Concomitant]
     Route: 048

REACTIONS (3)
  - CONFUSIONAL STATE [None]
  - DYSKINESIA [None]
  - PSYCHOMOTOR HYPERACTIVITY [None]
